FAERS Safety Report 15970240 (Version 1)
Quarter: 2019Q1

REPORT INFORMATION
  Report Type: Report from Study
  Country: US (occurrence: US)
  Receive Date: 20190215
  Receipt Date: 20190215
  Transmission Date: 20190418
  Serious: Yes (Hospitalization, Other)
  Sender: FDA-Public Use
  Company Number: US-AMAG PHARMACEUTICALS, INC.-AMAG201802203

PATIENT
  Age: 30 Year
  Sex: Female
  Weight: 91.16 kg

DRUGS (4)
  1. MAKENA [Suspect]
     Active Substance: HYDROXYPROGESTERONE CAPROATE
     Indication: PREMATURE DELIVERY
     Dosage: 250 MG/ML, WEEKLY
     Route: 030
     Dates: start: 20180417, end: 20180508
  2. PRENATAL VITAMINS [Concomitant]
     Active Substance: VITAMINS
     Indication: PREGNANCY
     Dosage: UNK
     Route: 065
     Dates: start: 20180129
  3. VITAMIN B6 [Concomitant]
     Active Substance: PYRIDOXINE HYDROCHLORIDE
     Indication: NAUSEA
     Dosage: UNK
     Route: 065
     Dates: start: 20180129
  4. DOXYLAMINE SUCCINATE. [Concomitant]
     Active Substance: DOXYLAMINE SUCCINATE
     Indication: NAUSEA
     Dosage: 250 MG/ML, QD
     Route: 065
     Dates: start: 20180129

REACTIONS (7)
  - Preterm premature rupture of membranes [Recovered/Resolved]
  - Umbilical cord prolapse [Recovered/Resolved]
  - Amniotic cavity infection [Recovered/Resolved]
  - Constipation [Unknown]
  - Dyspepsia [Unknown]
  - Premature delivery [Recovered/Resolved]
  - Induced labour [Recovered/Resolved]

NARRATIVE: CASE EVENT DATE: 20180427
